FAERS Safety Report 22365902 (Version 1)
Quarter: 2023Q2

REPORT INFORMATION
  Report Type: Report from Study
  Country: IT (occurrence: IT)
  Receive Date: 20230525
  Receipt Date: 20230525
  Transmission Date: 20230721
  Serious: Yes (Other)
  Sender: FDA-Public Use
  Company Number: IT-GLAXOSMITHKLINE-IT2023EME073496

PATIENT

DRUGS (1)
  1. BELANTAMAB MAFODOTIN [Suspect]
     Active Substance: BELANTAMAB MAFODOTIN
     Indication: Plasma cell myeloma
     Dosage: 2,5 MG/KG, EVERY 3 WEEEKS
     Dates: start: 202103, end: 202210

REACTIONS (5)
  - Plasma cell myeloma [Recovered/Resolved]
  - Pancytopenia [Recovered/Resolved]
  - Ocular toxicity [Recovered/Resolved]
  - Dry eye [Recovered/Resolved]
  - Visual acuity reduced [Recovered/Resolved]
